FAERS Safety Report 5521448-8 (Version None)
Quarter: 2007Q4

REPORT INFORMATION
  Report Type: 
  Country: None (occurrence: None)
  Receive Date: 20071119
  Receipt Date: 20071109
  Transmission Date: 20080405
  Serious: Yes (Death, Hospitalization, Other)
  Sender: FDA-Public Use
  Company Number: GB-PFIZER INC-2003115772

PATIENT
  Age: 73 Year
  Sex: Female
  Weight: 78 kg

DRUGS (11)
  1. LIPITOR [Suspect]
     Indication: HYPERCHOLESTEROLAEMIA
     Route: 048
     Dates: start: 20020101, end: 20030801
  2. DOXAZOSIN MESYLATE [Concomitant]
     Route: 048
     Dates: start: 20010101, end: 20030823
  3. BENDROFLUAZIDE [Concomitant]
     Route: 048
     Dates: start: 19990101, end: 20030823
  4. AMLODIPINE [Concomitant]
     Route: 048
     Dates: start: 19990101, end: 20030823
  5. RAMIPRIL [Concomitant]
     Route: 048
     Dates: start: 20020101, end: 20030823
  6. ACETYLSALICYLIC ACID SRT [Concomitant]
     Route: 048
     Dates: start: 19990101, end: 20030823
  7. CO-PROXAMOL [Concomitant]
     Route: 048
     Dates: start: 20000101, end: 20030819
  8. LANSOPRAZOLE [Concomitant]
     Route: 048
     Dates: start: 19970101, end: 20030823
  9. GAVISCON [Concomitant]
     Route: 048
     Dates: start: 19960101, end: 20030823
  10. BACTRIM [Concomitant]
     Route: 048
     Dates: start: 20030407, end: 20030708
  11. TRIMETHOPRIM [Concomitant]
     Route: 048

REACTIONS (5)
  - ACUTE HEPATIC FAILURE [None]
  - CONVULSION [None]
  - HEPATITIS [None]
  - JAUNDICE [None]
  - RESPIRATORY ARREST [None]
